FAERS Safety Report 4975224-5 (Version None)
Quarter: 2006Q2

REPORT INFORMATION
  Report Type: 
  Country: None (occurrence: None)
  Receive Date: 20060418
  Receipt Date: 20060106
  Transmission Date: 20061013
  Serious: Yes (Death, Hospitalization)
  Sender: FDA-Public Use
  Company Number: NL-BRISTOL-MYERS SQUIBB COMPANY-13239314

PATIENT
  Age: 69 Year
  Sex: Male
  Weight: 67 kg

DRUGS (10)
  1. CARBOPLATIN [Suspect]
     Indication: NON-SMALL CELL LUNG CANCER
     Route: 042
     Dates: start: 20051216, end: 20051216
  2. DOCETAXEL [Suspect]
     Indication: NON-SMALL CELL LUNG CANCER
     Route: 042
     Dates: start: 20051216, end: 20051216
  3. BLINDED: CELECOXIB [Suspect]
     Indication: NON-SMALL CELL LUNG CANCER
     Route: 042
     Dates: start: 20051216, end: 20051216
  4. BLINDED: PLACEBO [Suspect]
     Indication: NON-SMALL CELL LUNG CANCER
     Dates: start: 20051216, end: 20051216
  5. BISACODYL [Concomitant]
  6. METOCLOPRAMIDE HCL [Concomitant]
  7. PANTOZOL [Concomitant]
  8. LACTULOSE [Concomitant]
  9. MORPHINE [Concomitant]
  10. PARACETAMOL [Concomitant]

REACTIONS (3)
  - PERICARDIAL EFFUSION [None]
  - RESPIRATORY FAILURE [None]
  - SUBILEUS [None]
